FAERS Safety Report 8477766-7 (Version None)
Quarter: 2012Q2

REPORT INFORMATION
  Report Type: 
  Country: None (occurrence: None)
  Receive Date: 20120629
  Receipt Date: 20111019
  Transmission Date: 20120825
  Serious: No
  Sender: FDA-Public Use
  Company Number: US-GLAXOSMITHKLINE-A0949727A

PATIENT
  Age: 62 Year
  Sex: Female

DRUGS (20)
  1. VENTOLIN [Suspect]
     Indication: ASTHMA
     Dosage: 2PUFF AS REQUIRED
     Route: 055
  2. MULTIVITAMIN + MINERAL SUPPLEMENT [Concomitant]
  3. LUTEIN [Concomitant]
  4. VESICARE [Suspect]
     Indication: PRODUCT USED FOR UNKNOWN INDICATION
     Route: 065
  5. DYAZIDE [Concomitant]
  6. GARLIC [Concomitant]
  7. FOSAMAX [Concomitant]
  8. LOVAZA [Concomitant]
  9. POTASSIUM CHLORIDE [Concomitant]
  10. CRESTOR [Concomitant]
  11. VITAMIN E [Concomitant]
  12. MULTIVITAMIN [Concomitant]
  13. ALLEGRA [Concomitant]
  14. TAPAZOLE [Concomitant]
  15. XANAX [Concomitant]
  16. ASPIRIN [Concomitant]
  17. NASACORT [Concomitant]
     Route: 045
  18. NEXIUM [Concomitant]
  19. ZOLOFT [Concomitant]
  20. CALCIUM [Concomitant]

REACTIONS (3)
  - SWELLING FACE [None]
  - BLOOD PRESSURE INCREASED [None]
  - FLUID RETENTION [None]
